FAERS Safety Report 7592263-9 (Version None)
Quarter: 2011Q3

REPORT INFORMATION
  Report Type: 
  Country: None (occurrence: None)
  Receive Date: 20110705
  Receipt Date: 20110705
  Transmission Date: 20111222
  Serious: No
  Sender: FDA-Public Use
  Company Number: None

PATIENT
  Age: 41 Year
  Sex: Female
  Weight: 108.8633 kg

DRUGS (2)
  1. SYNTHROID [Suspect]
     Indication: HYPOTHYROIDISM
     Dosage: ONE EVERY NIGHT ONE WEEK USE PO
     Route: 048
     Dates: start: 20110525, end: 20110615
  2. SIMVASTATIN [Suspect]
     Indication: BLOOD CHOLESTEROL INCREASED
     Dosage: ONE EVERY NIGHT ONE WEEK USE PO
     Route: 048
     Dates: start: 20110622, end: 20110629

REACTIONS (4)
  - TENDERNESS [None]
  - ASTHENIA [None]
  - MYALGIA [None]
  - ARTHRALGIA [None]
